FAERS Safety Report 12273863 (Version 1)
Quarter: 2016Q2

REPORT INFORMATION
  Report Type: Spontaneous
  Country: US (occurrence: US)
  Receive Date: 20160415
  Receipt Date: 20160415
  Transmission Date: 20160815
  Serious: No
  Sender: FDA-Public Use
  Company Number: US-ALLERGAN-1504842US

PATIENT
  Age: 55 Year
  Sex: Female

DRUGS (2)
  1. LATISSE [Suspect]
     Active Substance: BIMATOPROST
     Indication: GROWTH OF EYELASHES
     Dosage: 1-2 GTT, QHS
     Route: 061
     Dates: start: 20150131, end: 201503
  2. PREMARIN [Concomitant]
     Active Substance: ESTROGENS, CONJUGATED
     Dosage: UNKNOWN

REACTIONS (5)
  - Abnormal sensation in eye [Unknown]
  - Ocular discomfort [Unknown]
  - Drug ineffective [Unknown]
  - Eye irritation [Unknown]
  - Ocular hyperaemia [Recovering/Resolving]
